FAERS Safety Report 15211017 (Version 1)
Quarter: 2018Q3

REPORT INFORMATION
  Report Type: Report from Study
  Country: ES (occurrence: ES)
  Receive Date: 20180728
  Receipt Date: 20180728
  Transmission Date: 20181010
  Serious: Yes (Other)
  Sender: FDA-Public Use
  Company Number: ES-UCBSA-2018029753

PATIENT
  Age: 26 Year
  Sex: Female
  Weight: 78 kg

DRUGS (1)
  1. CERTOLIZUMAB PEGOL [Suspect]
     Active Substance: CERTOLIZUMAB PEGOL
     Indication: PSORIATIC ARTHROPATHY
     Dosage: 200 MG, EV 15 DAYS
     Dates: start: 20180301

REACTIONS (4)
  - Twin pregnancy [Unknown]
  - Exposure during pregnancy [Unknown]
  - Premature delivery [Recovered/Resolved]
  - Pharyngotonsillitis [Unknown]

NARRATIVE: CASE EVENT DATE: 2018
